FAERS Safety Report 23883680 (Version 1)
Quarter: 2024Q2

REPORT INFORMATION
  Report Type: Spontaneous
  Country: US (occurrence: US)
  Receive Date: 20240522
  Receipt Date: 20240522
  Transmission Date: 20240716
  Serious: No
  Sender: FDA-Public Use
  Company Number: US-HALEON-2176458

PATIENT
  Age: 72 Year
  Sex: Male

DRUGS (1)
  1. FLONASE ALLERGY RELIEF [Suspect]
     Active Substance: FLUTICASONE PROPIONATE
     Indication: Product used for unknown indication
     Dates: start: 20240519, end: 20240519

REACTIONS (2)
  - Epistaxis [Recovered/Resolved]
  - Nasal pruritus [Unknown]

NARRATIVE: CASE EVENT DATE: 20240519
